FAERS Safety Report 4303267-3 (Version None)
Quarter: 2004Q1

REPORT INFORMATION
  Report Type: 
  Country: None (occurrence: None)
  Receive Date: 20040223
  Receipt Date: 20040205
  Transmission Date: 20041129
  Serious: Yes (Hospitalization)
  Sender: FDA-Public Use
  Company Number: 2004AP00700

PATIENT
  Age: 63 Year
  Sex: Male

DRUGS (18)
  1. IRESSA [Suspect]
     Indication: ADENOCARCINOMA
     Dosage: 250 MG DAILY PO
     Route: 048
     Dates: start: 20031021, end: 20031111
  2. IRESSA [Suspect]
     Indication: NON-SMALL CELL LUNG CANCER
     Dosage: 250 MG DAILY PO
     Route: 048
     Dates: start: 20031021, end: 20031111
  3. IRESSA [Suspect]
     Indication: ADENOCARCINOMA
     Dosage: 250 MG DAILY PO
     Route: 048
     Dates: start: 20031204, end: 20031230
  4. IRESSA [Suspect]
     Indication: NON-SMALL CELL LUNG CANCER
     Dosage: 250 MG DAILY PO
     Route: 048
     Dates: start: 20031204, end: 20031230
  5. TAKEPRON [Concomitant]
  6. DIOVAN [Concomitant]
  7. LASIX [Concomitant]
  8. MUCOSTA [Concomitant]
  9. ACINON [Concomitant]
  10. GASMOTIN [Concomitant]
  11. AM [Concomitant]
  12. CAMLEED [Concomitant]
  13. PROMAC [Concomitant]
  14. ARTIST [Concomitant]
  15. URSOSAN [Concomitant]
  16. GLYCYRON [Concomitant]
  17. ULCERLMIN [Concomitant]
  18. ALDACTONE [Concomitant]

REACTIONS (10)
  - ABDOMINAL PAIN UPPER [None]
  - BLOOD BILIRUBIN INCREASED [None]
  - DEHYDRATION [None]
  - DIARRHOEA [None]
  - MALIGNANT PLEURAL EFFUSION [None]
  - NAUSEA [None]
  - PERICARDIAL EFFUSION MALIGNANT [None]
  - PYREXIA [None]
  - RENAL IMPAIRMENT [None]
  - VOMITING [None]
